FAERS Safety Report 6399551-2 (Version None)
Quarter: 2009Q4

REPORT INFORMATION
  Report Type: 
  Country: None (occurrence: None)
  Receive Date: 20091013
  Receipt Date: 20091013
  Transmission Date: 20100525
  Serious: No
  Sender: FDA-Public Use
  Company Number: None

PATIENT
  Age: 62 Year
  Sex: Female
  Weight: 54.4316 kg

DRUGS (5)
  1. CEFDINIR [Suspect]
     Dosage: 300 MGM BID PO
     Route: 048
     Dates: start: 20090217
  2. CEFDINIR [Suspect]
     Dosage: 300 MGM BID PO
     Route: 048
     Dates: start: 20090218
  3. THYROID TAB [Concomitant]
  4. TOPAMAX [Concomitant]
  5. COMBIPATCH [Concomitant]

REACTIONS (7)
  - BACK PAIN [None]
  - BODY DYSMORPHIC DISORDER [None]
  - BONE PAIN [None]
  - FACIAL PAIN [None]
  - MUSCULOSKELETAL PAIN [None]
  - MYALGIA [None]
  - PAIN IN EXTREMITY [None]
